FAERS Safety Report 4602770-6 (Version None)
Quarter: 2005Q1

REPORT INFORMATION
  Report Type: 
  Country: None (occurrence: None)
  Receive Date: 20050309
  Receipt Date: 20050224
  Transmission Date: 20050727
  Serious: Yes (Other)
  Sender: FDA-Public Use
  Company Number: JP-JNJFOC-20050205650

PATIENT
  Age: 69 Year
  Sex: Male

DRUGS (4)
  1. TAVANIC [Suspect]
     Route: 049
     Dates: start: 20050209, end: 20050214
  2. RYTHMOL [Concomitant]
  3. MIFLASONE [Concomitant]
  4. FORADIL [Concomitant]

REACTIONS (2)
  - AGRANULOCYTOSIS [None]
  - NEUTROPENIA [None]
